FAERS Safety Report 16377847 (Version 1)
Quarter: 2019Q2

REPORT INFORMATION
  Report Type: Spontaneous
  Country: ES (occurrence: ES)
  Receive Date: 20190531
  Receipt Date: 20190531
  Transmission Date: 20190711
  Serious: Yes (Other)
  Sender: FDA-Public Use
  Company Number: ES-MYLANLABS-2019M1051043

PATIENT
  Age: 86 Year
  Sex: Male
  Weight: 73 kg

DRUGS (4)
  1. CLONAZEPAM. [Interacting]
     Active Substance: CLONAZEPAM
     Indication: PAIN
     Dosage: 10 GTT DROPS, QD
     Route: 048
     Dates: start: 20180520
  2. DIAZEPAM. [Interacting]
     Active Substance: DIAZEPAM
     Indication: ANXIETY
     Dosage: 5 MILLIGRAM, QD
     Route: 048
     Dates: start: 20180520, end: 20180618
  3. GABAPENTINA [Interacting]
     Active Substance: GABAPENTIN
     Indication: NEURALGIA
     Dosage: 300 MILLIGRAM, Q8H
     Route: 048
     Dates: start: 20180520
  4. TRAMADOL. [Suspect]
     Active Substance: TRAMADOL
     Indication: PAIN
     Dosage: 50 MILLIGRAM, Q8H
     Route: 048
     Dates: start: 20180520

REACTIONS (2)
  - Drug interaction [Unknown]
  - Somnolence [Recovered/Resolved]

NARRATIVE: CASE EVENT DATE: 20180613
